FAERS Safety Report 12407242 (Version 1)
Quarter: 2016Q2

REPORT INFORMATION
  Report Type: Spontaneous
  Country: BR (occurrence: BR)
  Receive Date: 20160526
  Receipt Date: 20160526
  Transmission Date: 20160815
  Serious: Yes (Hospitalization)
  Sender: FDA-Public Use
  Company Number: BR-UCBSA-2016018826

PATIENT
  Age: 36 Year
  Sex: Male
  Weight: 50 kg

DRUGS (7)
  1. FRISIUM [Concomitant]
     Active Substance: CLOBAZAM
     Indication: SEIZURE
     Dosage: 20 MG, ONCE DAILY (QD)
     Route: 048
     Dates: start: 201604
  2. TEGRETOL [Concomitant]
     Active Substance: CARBAMAZEPINE
     Indication: SEIZURE
     Dosage: UNK
     Dates: start: 201603, end: 2016
  3. VIMPAT [Suspect]
     Active Substance: LACOSAMIDE
     Dosage: 150 MG, 2X/DAY (BID)
     Route: 048
     Dates: start: 2016, end: 20160420
  4. DEPAKOTE [Concomitant]
     Active Substance: DIVALPROEX SODIUM
     Indication: SEIZURE
     Dosage: 500 MG, 2X/DAY (BID)
     Route: 048
     Dates: start: 201604
  5. TEGRETOL [Concomitant]
     Active Substance: CARBAMAZEPINE
     Dosage: 400 MG, 2X/DAY (BID)
     Route: 048
     Dates: start: 201604
  6. VIMPAT [Suspect]
     Active Substance: LACOSAMIDE
     Dosage: 100 MG, 2X/DAY (BID)
     Route: 048
     Dates: start: 201603, end: 201603
  7. VIMPAT [Suspect]
     Active Substance: LACOSAMIDE
     Indication: SEIZURE
     Dosage: 50 MG, 2X/DAY (BID)
     Route: 048
     Dates: start: 201603, end: 201603

REACTIONS (1)
  - Seizure [Unknown]

NARRATIVE: CASE EVENT DATE: 20160414
